FAERS Safety Report 6114593-X (Version None)
Quarter: 2009Q1

REPORT INFORMATION
  Report Type: 
  Country: None (occurrence: None)
  Receive Date: 20090311
  Receipt Date: 20080128
  Transmission Date: 20090719
  Serious: No
  Sender: FDA-Public Use
  Company Number: US200801007049

PATIENT
  Age: 51 Year
  Sex: Female

DRUGS (2)
  1. GEMZAR [Suspect]
     Indication: NON-SMALL CELL LUNG CANCER
  2. TAXOL [Concomitant]

REACTIONS (1)
  - PALMAR-PLANTAR ERYTHRODYSAESTHESIA SYNDROME [None]
